FAERS Safety Report 16572634 (Version 3)
Quarter: 2020Q1

REPORT INFORMATION
  Report Type: Spontaneous
  Country: US (occurrence: US)
  Receive Date: 20190715
  Receipt Date: 20200218
  Transmission Date: 20200409
  Serious: Yes (Hospitalization, Other)
  Sender: FDA-Public Use
  Company Number: US-SA-2019SA188067

PATIENT
  Age: 72 Year
  Sex: Male

DRUGS (14)
  1. PRALUENT [Suspect]
     Active Substance: ALIROCUMAB
     Indication: ARTERIOSCLEROSIS
     Dosage: 75 MG, QOW
     Route: 058
  2. ZETIA [Concomitant]
     Active Substance: EZETIMIBE
  3. TRAMADOL HYDROCHLORIDE. [Concomitant]
     Active Substance: TRAMADOL HYDROCHLORIDE
  4. FUROSEMIDE. [Concomitant]
     Active Substance: FUROSEMIDE
  5. HYDROCODONE BITARTRATE AND ACETAMINOPHEN [Concomitant]
     Active Substance: ACETAMINOPHEN\HYDROCODONE BITARTRATE
  6. CARVEDILOL. [Concomitant]
     Active Substance: CARVEDILOL
  7. FENOFIBRATE. [Concomitant]
     Active Substance: FENOFIBRATE
  8. JANUVIA [Concomitant]
     Active Substance: SITAGLIPTIN PHOSPHATE
  9. FLOVENT [Concomitant]
     Active Substance: FLUTICASONE PROPIONATE
  10. GABAPENTIN. [Concomitant]
     Active Substance: GABAPENTIN
  11. DICLOFENAC [Concomitant]
     Active Substance: DICLOFENAC
  12. POTASSIUM CHLORIDE. [Concomitant]
     Active Substance: POTASSIUM CHLORIDE
  13. METFORMIN [Concomitant]
     Active Substance: METFORMIN HYDROCHLORIDE
  14. LISINOPRIL. [Concomitant]
     Active Substance: LISINOPRIL

REACTIONS (2)
  - Cerebrovascular accident [Not Recovered/Not Resolved]
  - Product dose omission [Unknown]

NARRATIVE: CASE EVENT DATE: 20200211
